FAERS Safety Report 21269509 (Version 2)
Quarter: 2023Q1

REPORT INFORMATION
  Report Type: Spontaneous
  Country: FR (occurrence: FR)
  Receive Date: 20220830
  Receipt Date: 20230214
  Transmission Date: 20230418
  Serious: Yes (Life-Threatening, Hospitalization, Other)
  Sender: FDA-Public Use
  Company Number: None

PATIENT
  Age: 63 Year
  Sex: Female
  Weight: 55 kg

DRUGS (11)
  1. CARBOPLATIN [Suspect]
     Active Substance: CARBOPLATIN
     Indication: Ovarian cancer metastatic
     Dosage: 427 MG, Q3W
     Dates: start: 20220415, end: 20220602
  2. GEMCITABINE [Suspect]
     Active Substance: GEMCITABINE
     Indication: Ovarian cancer metastatic
     Dosage: 1550 MG, QW
     Dates: start: 20220415, end: 20220422
  3. LENOGRASTIM [Suspect]
     Active Substance: LENOGRASTIM
     Indication: Ovarian cancer metastatic
     Dosage: POWDER AND SOLVENT IN PRE-FILLED SYRINGE, 34 MILLION IU
     Dates: start: 20220423, end: 20220427
  4. PIPERACILLIN AND TAZOBACTAM [Suspect]
     Active Substance: PIPERACILLIN SODIUM\TAZOBACTAM SODIUM
     Indication: Febrile bone marrow aplasia
     Dosage: 4 G, TID
     Dates: start: 20220425, end: 20220505
  5. GENTAMICIN [Concomitant]
     Active Substance: GENTAMICIN
     Dates: start: 20220113
  6. GEMZAR [Concomitant]
     Active Substance: GEMCITABINE HYDROCHLORIDE
     Dates: start: 20220422
  7. CIPROFLOXACIN [Concomitant]
     Active Substance: CIPROFLOXACIN
  8. PREDNISONE [Concomitant]
     Active Substance: PREDNISONE
  9. PEGFILGRASTIM [Concomitant]
     Active Substance: PEGFILGRASTIM
     Dates: start: 20220604
  10. ONDANSETRON [Concomitant]
     Active Substance: ONDANSETRON
  11. EMEND [Concomitant]
     Active Substance: APREPITANT

REACTIONS (4)
  - Pulmonary alveolar haemorrhage [Unknown]
  - Febrile bone marrow aplasia [Recovered/Resolved]
  - Immune thrombocytopenia [Recovering/Resolving]
  - Cerebral haemorrhage [Unknown]

NARRATIVE: CASE EVENT DATE: 20220426
